FAERS Safety Report 9954465 (Version 1)
Quarter: 2014Q1

REPORT INFORMATION
  Report Type: Spontaneous
  Country: US (occurrence: US)
  Receive Date: 20140304
  Receipt Date: 20140304
  Transmission Date: 20141002
  Serious: No
  Sender: FDA-Public Use
  Company Number: US-AMGEN-USASP2014004580

PATIENT
  Age: 57 Year
  Sex: Male

DRUGS (8)
  1. ENBREL [Suspect]
     Indication: RHEUMATOID ARTHRITIS
     Dosage: 50 MG, QWK
     Route: 058
     Dates: start: 201312
  2. AMLODIPINE BESYLATE [Concomitant]
     Dosage: UNK
  3. METHOTREXATE [Concomitant]
     Dosage: UNK
  4. ATENOLOL [Concomitant]
     Dosage: UNK
  5. LISINOPRIL HCTZ [Concomitant]
     Dosage: UNK
  6. SERTRALINE HCL [Concomitant]
     Dosage: UNK
  7. TRAZODONE [Concomitant]
     Dosage: UNK
  8. OXYCODONE HCL [Concomitant]
     Dosage: UNK

REACTIONS (2)
  - Night sweats [Unknown]
  - Injection site haemorrhage [Unknown]
